FAERS Safety Report 5991578-5 (Version None)
Quarter: 2008Q4

REPORT INFORMATION
  Report Type: 
  Country: None (occurrence: None)
  Receive Date: 20081211
  Receipt Date: 20080430
  Transmission Date: 20090506
  Serious: No
  Sender: FDA-Public Use
  Company Number: US-AMGEN-KDL277233

PATIENT
  Sex: Female

DRUGS (3)
  1. ENBREL [Suspect]
     Indication: RHEUMATOID ARTHRITIS
     Route: 058
     Dates: start: 20000401
  2. METHOTREXATE [Concomitant]
  3. PNEUMOCOCCAL VACCINE [Concomitant]

REACTIONS (4)
  - LOCAL SWELLING [None]
  - NODULE ON EXTREMITY [None]
  - RASH ERYTHEMATOUS [None]
  - RASH PRURITIC [None]
